FAERS Safety Report 8486436-0 (Version None)
Quarter: 2012Q3

REPORT INFORMATION
  Report Type: 
  Country: None (occurrence: None)
  Receive Date: 20120703
  Receipt Date: 20120619
  Transmission Date: 20120928
  Serious: Yes (Death)
  Sender: FDA-Public Use
  Company Number: GB-WATSON-2012-09787

PATIENT
  Age: 49 Year
  Sex: Male

DRUGS (5)
  1. DULOXETIME HYDROCHLORIDE [Suspect]
     Indication: AGITATED DEPRESSION
     Dosage: 60 MG, UNKNOWN
     Route: 048
     Dates: start: 20101019, end: 20101229
  2. DIAZEPAM [Concomitant]
     Indication: PRODUCT USED FOR UNKNOWN INDICATION
     Route: 065
  3. ZOPICLONE [Concomitant]
     Indication: PRODUCT USED FOR UNKNOWN INDICATION
     Route: 065
  4. OLANZAPINE [Concomitant]
     Indication: PRODUCT USED FOR UNKNOWN INDICATION
     Route: 065
  5. CITALOPRAM HYDROBROMIDE [Suspect]
     Indication: DEPRESSED MOOD
     Dosage: 20 MG, UNKNOWN
     Route: 048
     Dates: start: 20101001, end: 20101018

REACTIONS (2)
  - SUICIDAL IDEATION [None]
  - DEATH [None]
